FAERS Safety Report 23015775 (Version 2)
Quarter: 2023Q4

REPORT INFORMATION
  Report Type: Report from Study
  Country: JP (occurrence: JP)
  Receive Date: 20231002
  Receipt Date: 20231006
  Transmission Date: 20240109
  Serious: Yes (Hospitalization)
  Sender: FDA-Public Use
  Company Number: JP-CHUGAI-2023034112

PATIENT
  Age: 51 Year
  Sex: Male
  Weight: 59.8 kg

DRUGS (14)
  1. FARICIMAB [Suspect]
     Active Substance: FARICIMAB
     Indication: Retinal degeneration
     Dosage: 6 MILLIGRAM/0.05ML, ONCE/4WEEKS, WEEK 8(25/SEP/2023), THE STUDY DRUG WAS INTERRUPTED
     Route: 065
     Dates: start: 20230731
  2. MEDROL [Concomitant]
     Active Substance: METHYLPREDNISOLONE
     Indication: Glomerulonephritis chronic
     Dosage: 4 MILLIGRAM, QD
     Dates: start: 201102
  3. NEORAL [Concomitant]
     Active Substance: CYCLOSPORINE
     Indication: Glomerulonephritis chronic
     Dosage: 50 MILLIGRAM, QD, AFTER BREAKFAST
     Dates: start: 201102
  4. NEORAL [Concomitant]
     Active Substance: CYCLOSPORINE
     Dosage: 25 MILLIGRAM, QD, AFTER DINNER
     Dates: start: 20201214, end: 20230919
  5. CELLCEPT [Concomitant]
     Active Substance: MYCOPHENOLATE MOFETIL
     Indication: Glomerulonephritis chronic
     Dosage: 500MG IN THE MORNING/250MG IN THE EVENING, BID
     Route: 065
     Dates: start: 201102
  6. SULFAMETHOXAZOLE\TRIMETHOPRIM [Concomitant]
     Active Substance: SULFAMETHOXAZOLE\TRIMETHOPRIM
     Indication: Glomerulonephritis chronic
     Dosage: 1 DOSAGE FORM, QD
     Dates: start: 20190727, end: 20230919
  7. AZELNIDIPINE\OLMESARTAN MEDOXOMIL [Concomitant]
     Active Substance: AZELNIDIPINE\OLMESARTAN MEDOXOMIL
     Indication: Glomerulonephritis chronic
     Dosage: 1 DOSAGE FORM, QD
     Dates: start: 201102, end: 20230919
  8. URINORM (JAPAN) [Concomitant]
     Indication: Glomerulonephritis chronic
     Dosage: 25 MILLIGRAM, QD
     Dates: start: 201102
  9. CINACALCET HYDROCHLORIDE [Concomitant]
     Active Substance: CINACALCET HYDROCHLORIDE
     Indication: Glomerulonephritis chronic
     Dosage: 25 MILLIGRAM, QD
     Dates: start: 201102
  10. LIPITOR [Concomitant]
     Active Substance: ATORVASTATIN CALCIUM
     Indication: Glomerulonephritis chronic
     Dosage: 10 MILLIGRAM, QD
     Dates: start: 201102
  11. LAFUTIDINE [Concomitant]
     Active Substance: LAFUTIDINE
     Indication: Glomerulonephritis chronic
     Dosage: 10 MILLIGRAM, QD
     Dates: start: 201102
  12. URSODIOL [Concomitant]
     Active Substance: URSODIOL
     Indication: Cholangitis
     Dosage: 200 MILLIGRAM, TID
     Dates: start: 20190107
  13. PANCRELIPASE [Concomitant]
     Active Substance: PANCRELIPASE
     Indication: Pancreatic neoplasm
     Dosage: 300 MILLIGRAM, TID
     Dates: start: 20190107
  14. MIRTAZAPINE [Concomitant]
     Active Substance: MIRTAZAPINE
     Indication: Prophylaxis
     Dosage: 15 MILLIGRAM, QD, BEFORE BEDTIME

REACTIONS (1)
  - Diverticulitis [Recovered/Resolved]

NARRATIVE: CASE EVENT DATE: 20230917
